FAERS Safety Report 8457675-X (Version None)
Quarter: 2012Q2

REPORT INFORMATION
  Report Type: 
  Country: None (occurrence: None)
  Receive Date: 20120618
  Receipt Date: 20120618
  Transmission Date: 20120825
  Serious: Yes (Disabling)
  Sender: FDA-Public Use
  Company Number: None

PATIENT
  Sex: Female

DRUGS (2)
  1. ETANERCEPT [Suspect]
     Indication: PSORIATIC ARTHROPATHY
     Dosage: 50 MG WEEKLY SQ 4 DOSES
     Route: 058
  2. ETANERCEPT [Suspect]
     Indication: PSORIASIS
     Dosage: 50 MG WEEKLY SQ 4 DOSES
     Route: 058

REACTIONS (3)
  - CARDIAC FAILURE CONGESTIVE [None]
  - CELLULITIS [None]
  - BREAST ABSCESS [None]
